FAERS Safety Report 24529058 (Version 1)
Quarter: 2024Q4

REPORT INFORMATION
  Report Type: Spontaneous
  Country: US (occurrence: US)
  Receive Date: 20241021
  Receipt Date: 20241021
  Transmission Date: 20250115
  Serious: No
  Sender: TEVA
  Company Number: US-TEVA-VS-3250148

PATIENT
  Age: 67 Year
  Sex: Male

DRUGS (4)
  1. SUCRALFATE [Suspect]
     Active Substance: SUCRALFATE
     Indication: Chronic gastritis
     Dosage: 3-4 PER DAY
     Route: 065
     Dates: start: 2024
  2. PANTOPRAZOLE SODIUM [Concomitant]
     Active Substance: PANTOPRAZOLE SODIUM
  3. IRON [Concomitant]
     Active Substance: IRON
  4. VITAMINS [Concomitant]
     Active Substance: VITAMINS

REACTIONS (3)
  - Blood urea increased [Unknown]
  - Glomerular filtration rate decreased [Unknown]
  - Blood glucose increased [Unknown]

NARRATIVE: CASE EVENT DATE: 20240101
